FAERS Safety Report 22315432 (Version 1)
Quarter: 2023Q2

REPORT INFORMATION
  Report Type: Spontaneous
  Country: US (occurrence: None)
  Receive Date: 20230511
  Receipt Date: 20230511
  Transmission Date: 20230722
  Serious: Yes (Other)
  Sender: FDA-Public Use
  Company Number: None

PATIENT
  Age: 37 Year
  Sex: Female

DRUGS (9)
  1. VALACYCLOVIR [Suspect]
     Active Substance: VALACYCLOVIR HYDROCHLORIDE
     Indication: Fatigue
     Dosage: OTHER QUANTITY : 1 PILL;?FREQUENCY : 4 TIMES A DAY;?
     Route: 048
  2. PROZAC [Concomitant]
     Active Substance: FLUOXETINE HYDROCHLORIDE
  3. NP THYROID [Concomitant]
     Active Substance: LEVOTHYROXINE\LIOTHYRONINE
  4. PROBIOTICS NOS [Concomitant]
     Active Substance: PROBIOTICS NOS
  5. MAGNESIUM [Concomitant]
     Active Substance: MAGNESIUM
  6. IRON [Concomitant]
     Active Substance: IRON
  7. PRE-NATAL [Concomitant]
  8. VITAMIN D NOS [Concomitant]
     Active Substance: VITAMIN D NOS
  9. VITAMIN B [Concomitant]
     Active Substance: VITAMIN B

REACTIONS (9)
  - Thinking abnormal [None]
  - Dysgeusia [None]
  - Electric shock sensation [None]
  - Vaginal haemorrhage [None]
  - Laboratory test abnormal [None]
  - Blood urea decreased [None]
  - Somnolence [None]
  - Therapeutic response unexpected [None]
  - Poor quality product administered [None]

NARRATIVE: CASE EVENT DATE: 20221201
